FAERS Safety Report 9806360 (Version 1)
Quarter: 2014Q1

REPORT INFORMATION
  Report Type: Spontaneous
  Country: NL (occurrence: None)
  Receive Date: 20140107
  Receipt Date: 20140107
  Transmission Date: 20141002
  Serious: Yes (Other)
  Sender: FDA-Public Use
  Company Number: AUR-APL-2013-10158

PATIENT
  Sex: Female

DRUGS (5)
  1. OMEPRAZOLE (OMEPRAZOLE) [Suspect]
     Indication: PROPHYLAXIS AGAINST GASTROINTESTINAL ULCER
  2. MELOXICAM (MELOXICAM) [Suspect]
     Indication: PRODUCT USED FOR UNKNOWN INDICATION
  3. TERIPARATIDE [Suspect]
     Indication: OSTEOPOROSIS PROPHYLAXIS
  4. BUDESONIDE (BUDESONIDE) [Concomitant]
  5. CALCIUM CARBONATE/ COLECALCIFEROL (LEKOVIT CA) [Concomitant]

REACTIONS (2)
  - Tinnitus [None]
  - Deafness unilateral [None]
